FAERS Safety Report 8425937-8 (Version None)
Quarter: 2012Q2

REPORT INFORMATION
  Report Type: 
  Country: None (occurrence: None)
  Receive Date: 20120611
  Receipt Date: 20120601
  Transmission Date: 20120825
  Serious: Yes (Hospitalization)
  Sender: FDA-Public Use
  Company Number: US-BAYER-2011-070660

PATIENT
  Age: 45 Year
  Sex: Female
  Weight: 111 kg

DRUGS (14)
  1. YASMIN [Suspect]
     Indication: PREMENSTRUAL SYNDROME
  2. DROSPIRENONE AND ETHINYL ESTRADIOL [Suspect]
     Indication: MENORRHAGIA
  3. DROSPIRENONE AND ETHINYL ESTRADIOL [Suspect]
     Indication: PREMENSTRUAL SYNDROME
  4. GLUCOPHAGE [Concomitant]
     Dosage: 1000 MG, UNK
  5. GLIPIZIDE [Concomitant]
     Dosage: 5 MG, UNK
  6. FLOVENT HFA [Concomitant]
     Dosage: 110MCG,UNK
  7. TRIAMTERENE AND HYDROCHLOROTHIAZIDE [Concomitant]
     Dosage: 37.5-25 MG
  8. MAXZIDE [Concomitant]
  9. YASMIN [Suspect]
     Indication: MENORRHAGIA
  10. DROSPIRENONE AND ETHINYL ESTRADIOL [Suspect]
     Indication: CONTRACEPTION
     Dosage: UNK
     Dates: start: 20080728, end: 20090807
  11. YASMIN [Suspect]
     Indication: CONTRACEPTION
     Dosage: UNK
     Dates: start: 20090807, end: 20090912
  12. VENTOLIN HFA [Concomitant]
     Dosage: 90MCG,UNK
  13. SIMVASTATIN [Concomitant]
     Dosage: 20 MG, UNK
  14. HYDROCHLOROTHIAZIDE [Concomitant]
     Dosage: 25 MG, UNK

REACTIONS (13)
  - PAIN [None]
  - BLINDNESS [None]
  - DIZZINESS [None]
  - CEREBROVASCULAR ACCIDENT [None]
  - FEELING HOT [None]
  - ASTHENIA [None]
  - ANXIETY [None]
  - INJURY [None]
  - EMOTIONAL DISTRESS [None]
  - SPEECH DISORDER [None]
  - VIITH NERVE PARALYSIS [None]
  - DIPLOPIA [None]
  - MONOPLEGIA [None]
